FAERS Safety Report 5981888-X (Version None)
Quarter: 2008Q4

REPORT INFORMATION
  Report Type: 
  Country: None (occurrence: None)
  Receive Date: 20081202
  Receipt Date: 20081122
  Transmission Date: 20090506
  Serious: Yes (Other)
  Sender: FDA-Public Use
  Company Number: 2008SP023882

PATIENT
  Age: 48 Year
  Sex: Female
  Weight: 96.1626 kg

DRUGS (8)
  1. PEG-INTRON [Suspect]
     Indication: HEPATITIS C
     Dosage: SC
     Route: 058
     Dates: start: 20080613, end: 20081121
  2. RIBAVIRIN [Suspect]
     Indication: HEPATITIS C
     Dosage: PO
     Route: 048
     Dates: start: 20080613, end: 20081121
  3. SYNTHROID [Concomitant]
  4. CLONAZEPAM [Concomitant]
  5. ZOLOFT [Concomitant]
  6. AMBIEN [Concomitant]
  7. GABAPENTIN [Concomitant]
  8. PAXIL [Concomitant]

REACTIONS (8)
  - ALOPECIA [None]
  - ANAEMIA [None]
  - BLOOD CALCIUM DECREASED [None]
  - DIARRHOEA [None]
  - FATIGUE [None]
  - ULCER [None]
  - WEIGHT DECREASED [None]
  - WHITE BLOOD CELL COUNT DECREASED [None]
